FAERS Safety Report 4619126-2 (Version None)
Quarter: 2005Q1

REPORT INFORMATION
  Report Type: 
  Country: None (occurrence: None)
  Receive Date: 20050325
  Receipt Date: 20040928
  Transmission Date: 20050727
  Serious: Yes (Hospitalization)
  Sender: FDA-Public Use
  Company Number: IL-SANOFI-SYNTHELABO-F01200402945

PATIENT
  Sex: Male

DRUGS (6)
  1. OXALIPLATIN [Suspect]
     Indication: COLORECTAL CANCER METASTATIC
     Route: 042
     Dates: start: 20040602, end: 20040602
  2. CAPECITABINE [Suspect]
     Dosage: 1000 MG/M2 TWICE DAILY FROM D1 TO D14, Q3W
     Route: 048
     Dates: start: 20040602
  3. BEVACIZUMAB OR PLACEBO [Suspect]
     Route: 042
     Dates: start: 20040602, end: 20040602
  4. CAPTOPRIL [Concomitant]
  5. DISOTHIAZIDE [Concomitant]
  6. LERCANIDIPINE [Concomitant]

REACTIONS (12)
  - BACTERAEMIA [None]
  - COMPLICATION OF DEVICE REMOVAL [None]
  - COUGH [None]
  - DEPRESSION [None]
  - DIARRHOEA HAEMORRHAGIC [None]
  - ESCHERICHIA URINARY TRACT INFECTION [None]
  - INTERNATIONAL NORMALISED RATIO INCREASED [None]
  - PANCYTOPENIA [None]
  - PROCEDURAL COMPLICATION [None]
  - PYREXIA [None]
  - URINARY TRACT INFECTION [None]
  - URINARY TRACT INFECTION PSEUDOMONAL [None]
